FAERS Safety Report 24162582 (Version 2)
Quarter: 2024Q3

REPORT INFORMATION
  Report Type: Spontaneous
  Country: US (occurrence: US)
  Receive Date: 20240801
  Receipt Date: 20240903
  Transmission Date: 20241017
  Serious: Yes (Hospitalization, Other)
  Sender: HIKMA
  Company Number: HIKM2406126

PATIENT
  Age: 37 Year
  Sex: Female
  Weight: 69.4 kg

DRUGS (7)
  1. CAPLYTA [Suspect]
     Active Substance: LUMATEPERONE
     Indication: Bipolar I disorder
     Dosage: 1 DOSAGE FORM, QD
     Route: 048
     Dates: start: 20230510, end: 2024
  2. LITHIUM [Suspect]
     Active Substance: LITHIUM
     Indication: Bipolar I disorder
     Dosage: 300 MILLIGRAM IN THE MORNING + 600 MG ONCE AT BEDTIME
     Route: 048
     Dates: start: 201301, end: 20240315
  3. FLEXERIL [Concomitant]
     Active Substance: CYCLOBENZAPRINE HYDROCHLORIDE
     Indication: Product used for unknown indication
     Dosage: UNKNOWN
     Route: 065
  4. IBUPROFEN [Concomitant]
     Active Substance: IBUPROFEN
     Indication: Product used for unknown indication
     Dosage: UNKNOWN
     Route: 065
  5. INGREZZA [Concomitant]
     Active Substance: VALBENAZINE
     Indication: Product used for unknown indication
     Dosage: UNKNOWN
     Route: 065
  6. KLONOPIN [Concomitant]
     Active Substance: CLONAZEPAM
     Indication: Product used for unknown indication
     Dosage: UNKNOWN
     Route: 065
  7. TRAZODONE [Concomitant]
     Active Substance: TRAZODONE HYDROCHLORIDE
     Indication: Product used for unknown indication
     Dosage: UNKNOWN
     Route: 065

REACTIONS (19)
  - Coma [Recovered/Resolved]
  - Unresponsive to stimuli [Recovered/Resolved]
  - Toxicity to various agents [Recovered/Resolved]
  - Renal failure [Recovered/Resolved]
  - Gait disturbance [Unknown]
  - Acute respiratory failure [Recovered/Resolved]
  - Nephrogenic diabetes insipidus [Recovering/Resolving]
  - Toxic encephalopathy [Recovered/Resolved]
  - Hypernatraemia [Recovered/Resolved]
  - Hypokalaemia [Unknown]
  - Hypomagnesaemia [Unknown]
  - Myopathy [Recovering/Resolving]
  - Physical deconditioning [Unknown]
  - Cerebral atrophy [Unknown]
  - Cerebral ischaemia [Unknown]
  - Bladder injury [Unknown]
  - Inappropriate schedule of product administration [Unknown]
  - Atelectasis [Unknown]
  - Nightmare [Recovered/Resolved]

NARRATIVE: CASE EVENT DATE: 20040201
